FAERS Safety Report 14958092 (Version 2)
Quarter: 2018Q2

REPORT INFORMATION
  Report Type: Report from Study
  Country: AR (occurrence: AR)
  Receive Date: 20180531
  Receipt Date: 20180622
  Transmission Date: 20180711
  Serious: Yes (Hospitalization, Other)
  Sender: FDA-Public Use
  Company Number: AR-JNJFOC-20180537862

PATIENT
  Age: 62 Year
  Sex: Male

DRUGS (3)
  1. T4 [Concomitant]
     Active Substance: LEVOTHYROXINE
     Route: 065
  2. PARACETAMOL [Concomitant]
     Active Substance: ACETAMINOPHEN
     Route: 065
  3. XARELTO [Suspect]
     Active Substance: RIVAROXABAN
     Indication: ATRIAL FIBRILLATION
     Route: 048
     Dates: start: 201401

REACTIONS (3)
  - Pancreatitis [Recovered/Resolved]
  - Wrong technique in product usage process [Recovering/Resolving]
  - Incorrect dose administered [Recovering/Resolving]

NARRATIVE: CASE EVENT DATE: 201401
